FAERS Safety Report 8159255-2 (Version None)
Quarter: 2012Q1

REPORT INFORMATION
  Report Type: 
  Country: None (occurrence: None)
  Receive Date: 20120217
  Receipt Date: 20120206
  Transmission Date: 20120608
  Serious: Yes (Hospitalization)
  Sender: FDA-Public Use
  Company Number: 2012P1004350

PATIENT
  Age: 35 Year
  Sex: Male

DRUGS (5)
  1. BIPERIDEN HYDROCHLORIDE TAB [Concomitant]
  2. CLONAZEPAM [Concomitant]
  3. CHLORPROMAZINE [Suspect]
     Indication: INSOMNIA
     Dosage: 50 MG;HS
  4. RISPERIDONE [Suspect]
     Indication: BORDERLINE PERSONALITY DISORDER
     Dosage: 3 MG;QD
  5. RISPERIDONE [Suspect]
     Indication: SCHIZOPHRENIA
     Dosage: 3 MG;QD

REACTIONS (2)
  - PRIAPISM [None]
  - TREATMENT FAILURE [None]
